FAERS Safety Report 9804079 (Version 1)
Quarter: 2014Q1

REPORT INFORMATION
  Report Type: Spontaneous
  Country: US (occurrence: US)
  Receive Date: 20140108
  Receipt Date: 20140108
  Transmission Date: 20141002
  Serious: Yes (Other)
  Sender: FDA-Public Use
  Company Number: US-GILEAD-2014-0091274

PATIENT
  Sex: Male

DRUGS (2)
  1. RANEXA [Suspect]
     Indication: ANGINA PECTORIS
     Dosage: 1000 MG, UNK
     Route: 048
     Dates: start: 20121001
  2. RANEXA [Suspect]
     Dosage: 500 MG, UNK
     Route: 048
     Dates: start: 2009

REACTIONS (3)
  - Choking [Unknown]
  - Oropharyngeal pain [Unknown]
  - Product size issue [Unknown]
